FAERS Safety Report 18193090 (Version 1)
Quarter: 2020Q3

REPORT INFORMATION
  Report Type: Spontaneous
  Country: HN (occurrence: HN)
  Receive Date: 20200825
  Receipt Date: 20200825
  Transmission Date: 20201103
  Serious: Yes (Other)
  Sender: FDA-Public Use
  Company Number: HN-PFIZER INC-2020327702

PATIENT
  Age: 66 Year
  Sex: Male

DRUGS (1)
  1. LIPITOR [Suspect]
     Active Substance: ATORVASTATIN CALCIUM
     Dosage: UNK (HALF A TABLET DAILY  OR ONE TABLET EVERY TWO DAYS)
     Route: 048

REACTIONS (2)
  - Diabetes mellitus [Unknown]
  - Off label use [Unknown]
